FAERS Safety Report 5722668-X (Version None)
Quarter: 2008Q2

REPORT INFORMATION
  Report Type: 
  Country: None (occurrence: None)
  Receive Date: 20080429
  Receipt Date: 20071218
  Transmission Date: 20081010
  Serious: No
  Sender: FDA-Public Use
  Company Number: US-ASTRAZENECA-2007UW28598

PATIENT
  Age: 56 Year
  Sex: Female
  Weight: 67.1 kg

DRUGS (3)
  1. NEXIUM [Suspect]
     Indication: ULCER
     Route: 048
  2. LISINOPRIL [Concomitant]
     Route: 048
  3. PROZAC [Concomitant]

REACTIONS (1)
  - CHROMATURIA [None]
